FAERS Safety Report 8452720-X (Version None)
Quarter: 2012Q2

REPORT INFORMATION
  Report Type: 
  Country: None (occurrence: None)
  Receive Date: 20120620
  Receipt Date: 20120614
  Transmission Date: 20120825
  Serious: Yes (Hospitalization)
  Sender: FDA-Public Use
  Company Number: JP-ABBOTT-12P-087-0946179-00

PATIENT
  Sex: Female
  Weight: 44 kg

DRUGS (7)
  1. MESALAMINE [Concomitant]
     Indication: CROHN'S DISEASE
     Dosage: 3000 MG DAILY
     Route: 048
  2. HUMIRA [Suspect]
     Indication: CROHN'S DISEASE
     Route: 058
     Dates: start: 20110125, end: 20110125
  3. VITAMIN B COMPLEX CAP [Concomitant]
     Indication: CROHN'S DISEASE
     Dosage: 3 DOSAGE FORMS DAILY
     Route: 048
  4. HUMIRA [Suspect]
     Dates: start: 20110208, end: 20110208
  5. HUMIRA [Suspect]
     Dates: start: 20110222
  6. CLOSTRIDIUM BUTYRICUM [Concomitant]
     Indication: CROHN'S DISEASE
     Dosage: 3 DOSAGE FORMS DAILY
     Route: 048
  7. RABEPRAZOLE SODIUM [Concomitant]
     Indication: GASTROINTESTINAL DISORDER
     Dosage: 10 MG DAILY
     Route: 048

REACTIONS (1)
  - ILEUS [None]
